FAERS Safety Report 4986863-X (Version None)
Quarter: 2006Q2

REPORT INFORMATION
  Report Type: 
  Country: None (occurrence: None)
  Receive Date: 20060428
  Receipt Date: 20060419
  Transmission Date: 20061013
  Serious: Yes (Death)
  Sender: FDA-Public Use
  Company Number: BR-ABBOTT-06P-020-0331643-00

PATIENT
  Age: 54 Year
  Sex: Male

DRUGS (6)
  1. CYCLOSPORINE [Suspect]
     Indication: IMMUNOSUPPRESSION
     Dosage: 4-6 MG/KG/DAY
  2. AZATHIOPRINE [Suspect]
     Indication: IMMUNOSUPPRESSION
     Dosage: 4 MG/KG
  3. AZATHIOPRINE [Suspect]
     Dosage: 2-2.5 MG/KG/DAY
     Route: 048
  4. METHYLPREDNISOLONE 4MG TAB [Suspect]
     Indication: IMMUNOSUPPRESSION
     Route: 042
  5. METHYLPREDNISOLONE 4MG TAB [Suspect]
     Dosage: 750 MG-1 GRAM FROM THE INTRAOPERATIVE PERIOD TO THE THIRD DAY POST-OP
     Route: 042
  6. PREDNISONE [Suspect]
     Indication: IMMUNOSUPPRESSION
     Dosage: 1-1.5 MG/KG/DAY
     Route: 048

REACTIONS (1)
  - BASAL CELL CARCINOMA [None]
